FAERS Safety Report 9815516 (Version 1)
Quarter: 2014Q1

REPORT INFORMATION
  Report Type: Spontaneous
  Country: US (occurrence: US)
  Receive Date: 20140114
  Receipt Date: 20140114
  Transmission Date: 20141002
  Serious: Yes (Death, Hospitalization)
  Sender: FDA-Public Use
  Company Number: US-JNJFOC-20140104047

PATIENT
  Age: 36 Year
  Sex: Male

DRUGS (1)
  1. FENTANYL TRANSDERMAL SYSTEM [Suspect]
     Indication: PRODUCT USED FOR UNKNOWN INDICATION
     Route: 048

REACTIONS (11)
  - Toxicity to various agents [Fatal]
  - Drug abuse [Fatal]
  - Brain injury [Fatal]
  - Intentional drug misuse [Fatal]
  - Brain herniation [Fatal]
  - Hypoglycaemia [Unknown]
  - Cardiac arrest [Unknown]
  - Metabolic acidosis [Unknown]
  - Renal failure acute [Unknown]
  - Diabetes insipidus [Unknown]
  - Atelectasis [Unknown]
